FAERS Safety Report 13328315 (Version 5)
Quarter: 2018Q2

REPORT INFORMATION
  Report Type: Report from Study
  Country: CA (occurrence: CA)
  Receive Date: 20170313
  Receipt Date: 20180521
  Transmission Date: 20180711
  Serious: Yes (Hospitalization)
  Sender: FDA-Public Use
  Company Number: CA-ROCHE-1859066

PATIENT
  Age: 68 Year
  Sex: Female
  Weight: 74.8 kg

DRUGS (17)
  1. GRANISETRON [Concomitant]
     Active Substance: GRANISETRON
     Indication: VOMITING
  2. ROSUVASTATIN. [Concomitant]
     Active Substance: ROSUVASTATIN
  3. CITALOPRAM [Concomitant]
     Active Substance: CITALOPRAM HYDROBROMIDE
     Indication: DEPRESSION
  4. PANTOLOC [Concomitant]
     Active Substance: PANTOPRAZOLE SODIUM
     Indication: DYSPEPSIA
  5. ADALAT CC [Concomitant]
     Active Substance: NIFEDIPINE
     Indication: HYPERTENSION
  6. PERCOCET [Concomitant]
     Active Substance: ACETAMINOPHEN\OXYCODONE HYDROCHLORIDE
     Indication: BREAST PAIN
     Route: 065
     Dates: start: 20150929
  7. ADVIL [Concomitant]
     Active Substance: IBUPROFEN
     Indication: ARTHRALGIA
     Route: 065
     Dates: start: 20161011
  8. IMODIUM [Concomitant]
     Active Substance: LOPERAMIDE HYDROCHLORIDE
     Indication: DIARRHOEA
     Route: 065
     Dates: start: 20161004
  9. NAB-PACLITAXEL [Suspect]
     Active Substance: PACLITAXEL
     Indication: BREAST CANCER METASTATIC
     Dosage: INTRAVENOUSLY OVER 30 MINUTES ON DAYS 1, 8, AND 15 OF EACH 28-DAY CYCLE 3-WEEKS-ON AND 1-WEEK-OFF SC
     Route: 042
     Dates: start: 20161006
  10. PREGABALIN. [Concomitant]
     Active Substance: PREGABALIN
     Indication: BREAST PAIN
  11. RANITIDINE. [Concomitant]
     Active Substance: RANITIDINE
     Indication: INFUSION RELATED REACTION
     Route: 065
     Dates: start: 20161102, end: 20161102
  12. GRANISETRON [Concomitant]
     Active Substance: GRANISETRON
     Indication: NAUSEA
     Route: 065
     Dates: start: 20161020, end: 20161020
  13. METONIA [Concomitant]
     Active Substance: METOCLOPRAMIDE
     Indication: NAUSEA
     Route: 065
     Dates: start: 20161006
  14. BENADRYL [Concomitant]
     Active Substance: DIPHENHYDRAMINE HYDROCHLORIDE
     Indication: INFUSION RELATED REACTION
     Route: 065
     Dates: start: 20161102, end: 20161102
  15. CLONAZEPAM. [Concomitant]
     Active Substance: CLONAZEPAM
     Indication: ANXIETY
  16. DECADRON [Concomitant]
     Active Substance: DEXAMETHASONE
     Indication: INFUSION RELATED REACTION
     Route: 065
     Dates: start: 20161102, end: 20161102
  17. ATEZOLIZUMAB. [Suspect]
     Active Substance: ATEZOLIZUMAB
     Indication: BREAST CANCER METASTATIC
     Dosage: MOST RECENT DOSE OF BLINDED  ATEZOLIZUMAB WAS ADMINISTERED ON 20/OCT/2016 PRIOR TO AE ONSET
     Route: 042
     Dates: start: 20161006

REACTIONS (1)
  - Loss of consciousness [Recovered/Resolved]

NARRATIVE: CASE EVENT DATE: 20161116
